FAERS Safety Report 7800394-0 (Version None)
Quarter: 2011Q4

REPORT INFORMATION
  Report Type: 
  Country: None (occurrence: None)
  Receive Date: 20111004
  Receipt Date: 20110919
  Transmission Date: 20120403
  Serious: Yes (Life-Threatening)
  Sender: FDA-Public Use
  Company Number: FK201102004

PATIENT
  Age: 31 Year
  Sex: Male

DRUGS (3)
  1. PROPOFOL [Suspect]
     Indication: INDUCTION OF ANAESTHESIA
     Dosage: INTRAVENOUS (NOT OTHERWISE SPECIFIED)
     Route: 042
     Dates: start: 20110831, end: 20110831
  2. FENTANYL [Concomitant]
  3. ONDANSETRON [Concomitant]

REACTIONS (4)
  - MUSCLE TIGHTNESS [None]
  - TONIC CLONIC MOVEMENTS [None]
  - ERYTHEMA [None]
  - RASH [None]
